FAERS Safety Report 6866290-0 (Version None)
Quarter: 2010Q3

REPORT INFORMATION
  Report Type: 
  Country: None (occurrence: None)
  Receive Date: 20100722
  Receipt Date: 20100621
  Transmission Date: 20110219
  Serious: No
  Sender: FDA-Public Use
  Company Number: US-BAYER-201017301BCC

PATIENT
  Age: 81 Year
  Sex: Male
  Weight: 91 kg

DRUGS (3)
  1. ALEVE [Suspect]
     Indication: PAIN IN EXTREMITY
     Dosage: TOTAL DAILY DOSE: 1320 MG  UNIT DOSE: 220 MG
     Route: 048
     Dates: start: 20100601
  2. UNKNOWN BLOOD PRESSURE MEDICATION [Concomitant]
     Route: 065
  3. HYDROXYUREA [Concomitant]
     Route: 065

REACTIONS (2)
  - FLUID RETENTION [None]
  - JOINT SWELLING [None]
